FAERS Safety Report 22950607 (Version 4)
Quarter: 2024Q4

REPORT INFORMATION
  Report Type: Spontaneous
  Country: US (occurrence: US)
  Receive Date: 20230915
  Receipt Date: 20241219
  Transmission Date: 20250114
  Serious: Yes (Other)
  Sender: GLAXOSMITHKLINE
  Company Number: US-MMM-DGHA0SYT

PATIENT

DRUGS (3)
  1. BENLYSTA [Suspect]
     Active Substance: BELIMUMAB
     Indication: Product used for unknown indication
     Dosage: UNK
  2. BENLYSTA [Suspect]
     Active Substance: BELIMUMAB
  3. BENLYSTA [Suspect]
     Active Substance: BELIMUMAB
     Indication: Systemic lupus erythematosus
     Dosage: 200 MG/ML
     Dates: start: 200901

REACTIONS (11)
  - Neck surgery [Unknown]
  - Migraine [Not Recovered/Not Resolved]
  - Illness [Unknown]
  - Rash [Unknown]
  - Contusion [Not Recovered/Not Resolved]
  - Musculoskeletal disorder [Unknown]
  - COVID-19 [Not Recovered/Not Resolved]
  - Bedridden [Unknown]
  - Performance status decreased [Unknown]
  - Multiple allergies [Not Recovered/Not Resolved]
  - Product dose omission issue [Unknown]

NARRATIVE: CASE EVENT DATE: 20241125
